FAERS Safety Report 18605095 (Version 1)
Quarter: 2020Q4

REPORT INFORMATION
  Report Type: Spontaneous
  Country: US (occurrence: US)
  Receive Date: 20201211
  Receipt Date: 20201211
  Transmission Date: 20210114
  Serious: No
  Sender: FDA-Public Use
  Company Number: None

PATIENT
  Age: 41 Year
  Sex: Female

DRUGS (1)
  1. HUMIRA [Suspect]
     Active Substance: ADALIMUMAB
     Indication: HIDRADENITIS

REACTIONS (7)
  - Drug dose omission by device [None]
  - Device malfunction [None]
  - Injection site erythema [None]
  - Needle issue [None]
  - Injection site pruritus [None]
  - Device leakage [None]
  - Urticaria [None]

NARRATIVE: CASE EVENT DATE: 20201208
